FAERS Safety Report 4457607-5 (Version None)
Quarter: 2004Q3

REPORT INFORMATION
  Report Type: 
  Country: None (occurrence: None)
  Receive Date: 20040921
  Receipt Date: 20040902
  Transmission Date: 20050211
  Serious: Yes (Hospitalization)
  Sender: FDA-Public Use
  Company Number: B0331416A

PATIENT
  Age: 4 Day
  Sex: Female

DRUGS (4)
  1. RETROVIR [Suspect]
     Indication: ANTIVIRAL PROPHYLAXIS
     Dosage: 6 MG/FOUR TIMES DAY/ORAL
     Route: 048
     Dates: start: 20030922, end: 20031102
  2. COMBIVIR [Suspect]
     Indication: HIV INFECTION
     Dosage: TRANSPLACENTARY
     Route: 064
     Dates: start: 20030715, end: 20030922
  3. RETROVIR [Suspect]
     Indication: ANTIVIRAL PROPHYLAXIS
     Dosage: TRANSPLACENTARY
     Route: 064
     Dates: start: 20030715, end: 20030922
  4. NELFINAVIR MESYLATE (NELFINAVIR MESYLATE) [Suspect]
     Indication: ANTIVIRAL PROPHYLAXIS
     Dosage: TRANSPLACENTARY
     Route: 064
     Dates: start: 20030715, end: 20030922

REACTIONS (9)
  - ANAEMIA NEONATAL [None]
  - CAESAREAN SECTION [None]
  - DILATATION INTRAHEPATIC DUCT ACQUIRED [None]
  - DRUG EXPOSURE DURING PREGNANCY [None]
  - FAECES PALE [None]
  - HAEMANGIOMA [None]
  - MACROCYTOSIS [None]
  - NEONATAL DISORDER [None]
  - URETHRAL CYST [None]
